FAERS Safety Report 21383473 (Version 1)
Quarter: 2022Q3

REPORT INFORMATION
  Report Type: Spontaneous
  Country: CZ (occurrence: CZ)
  Receive Date: 20220927
  Receipt Date: 20220927
  Transmission Date: 20221026
  Serious: Yes (Other)
  Sender: FDA-Public Use
  Company Number: CZ-NOVARTISPH-NVSC2022CZ172139

PATIENT
  Sex: Male

DRUGS (1)
  1. ROSUVASTATIN [Suspect]
     Active Substance: ROSUVASTATIN
     Indication: Acute coronary syndrome
     Dosage: UNK
     Route: 048

REACTIONS (2)
  - Muscle spasms [Unknown]
  - Blood creatine phosphokinase increased [Unknown]
